FAERS Safety Report 7040896-0 (Version None)
Quarter: 2010Q4

REPORT INFORMATION
  Report Type: 
  Country: None (occurrence: None)
  Receive Date: 20101013
  Receipt Date: 20101005
  Transmission Date: 20110411
  Serious: Yes (Death)
  Sender: FDA-Public Use
  Company Number: US-JNJFOC-20100800466

PATIENT
  Age: 18 Month
  Sex: Male

DRUGS (2)
  1. CHILDREN'S MOTRIN [Suspect]
     Indication: PYREXIA
     Dosage: TREATED W/ ^APPROPRIATE^ DOSE
     Route: 048
  2. CHILDREN'S MOTRIN [Suspect]
     Indication: UPPER RESPIRATORY TRACT INFECTION
     Dosage: TREATED W/ ^APPROPRIATE^ DOSE
     Route: 048

REACTIONS (3)
  - DEATH [None]
  - FEBRILE CONVULSION [None]
  - PRODUCT QUALITY ISSUE [None]
